FAERS Safety Report 20005197 (Version 1)
Quarter: 2021Q4

REPORT INFORMATION
  Report Type: Spontaneous
  Country: US (occurrence: US)
  Receive Date: 20211027
  Receipt Date: 20211027
  Transmission Date: 20220304
  Serious: Yes (Other)
  Sender: FDA-Public Use
  Company Number: None

PATIENT
  Age: 42 Year
  Sex: Male

DRUGS (1)
  1. LANTUS [Suspect]
     Active Substance: INSULIN GLARGINE

REACTIONS (10)
  - Skin mass [None]
  - Skin infection [None]
  - Soft tissue infection [None]
  - Serratia infection [None]
  - Injection site infection [None]
  - Injection site nodule [None]
  - Injection site ulcer [None]
  - Product quality issue [None]
  - Culture wound positive [None]
  - Product contamination microbial [None]

NARRATIVE: CASE EVENT DATE: 20211025
